FAERS Safety Report 24684766 (Version 1)
Quarter: 2024Q4

REPORT INFORMATION
  Report Type: Spontaneous
  Country: IT (occurrence: IT)
  Receive Date: 20241202
  Receipt Date: 20241202
  Transmission Date: 20250115
  Serious: Yes (Other)
  Sender: CHEPLAPHARM
  Company Number: None

PATIENT
  Age: 52 Year
  Sex: Male

DRUGS (8)
  1. CAPECITABINE [Suspect]
     Active Substance: CAPECITABINE
     Indication: Metastases to bone
  2. CAPECITABINE [Suspect]
     Active Substance: CAPECITABINE
     Indication: Neuroendocrine tumour
  3. CAPECITABINE [Suspect]
     Active Substance: CAPECITABINE
     Indication: Metastases to liver
  4. CAPECITABINE [Suspect]
     Active Substance: CAPECITABINE
     Indication: Carcinoid heart disease
  5. TEMOZOLOMIDE [Suspect]
     Active Substance: TEMOZOLOMIDE
     Indication: Metastases to liver
  6. TEMOZOLOMIDE [Suspect]
     Active Substance: TEMOZOLOMIDE
     Indication: Metastases to bone
  7. TEMOZOLOMIDE [Suspect]
     Active Substance: TEMOZOLOMIDE
     Indication: Carcinoid heart disease
  8. TEMOZOLOMIDE [Suspect]
     Active Substance: TEMOZOLOMIDE
     Indication: Neuroendocrine tumour

REACTIONS (5)
  - Pulmonary valve stenosis [Unknown]
  - Pulmonary valve incompetence [Unknown]
  - Left ventricular dilatation [Unknown]
  - Systolic dysfunction [Unknown]
  - Off label use [Unknown]
